FAERS Safety Report 6347746-6 (Version None)
Quarter: 2009Q3

REPORT INFORMATION
  Report Type: 
  Country: None (occurrence: None)
  Receive Date: 20090910
  Receipt Date: 20090901
  Transmission Date: 20100115
  Serious: Yes (Hospitalization)
  Sender: FDA-Public Use
  Company Number: A0779049A

PATIENT
  Age: 53 Year
  Sex: Female
  Weight: 145.5 kg

DRUGS (12)
  1. AVANDIA [Suspect]
     Indication: DIABETES MELLITUS
     Dosage: 4MG PER DAY
     Route: 048
     Dates: start: 20020101, end: 20070313
  2. GLUCOVANCE [Concomitant]
  3. TOPROL-XL [Concomitant]
  4. CELEBREX [Concomitant]
  5. PAXIL [Concomitant]
  6. BENICAR [Concomitant]
  7. NEXIUM [Concomitant]
  8. VERAPAMIL [Concomitant]
  9. LIPITOR [Concomitant]
  10. DEMADEX [Concomitant]
  11. KDUR [Concomitant]
  12. SINGULAIR [Concomitant]

REACTIONS (2)
  - CARDIAC FAILURE CONGESTIVE [None]
  - MYOCARDIAL INFARCTION [None]
